FAERS Safety Report 13080782 (Version 2)
Quarter: 2017Q1

REPORT INFORMATION
  Report Type: Spontaneous
  Country: US (occurrence: US)
  Receive Date: 20170103
  Receipt Date: 20170123
  Transmission Date: 20170428
  Serious: Yes (Other)
  Sender: FDA-Public Use
  Company Number: US-PFIZER INC-2015445019

PATIENT
  Age: 52 Year
  Sex: Female
  Weight: 79 kg

DRUGS (2)
  1. RAPAMUNE [Suspect]
     Active Substance: SIROLIMUS
     Indication: GOUT
     Dosage: 2 MG, DAILY
     Route: 048
  2. RAPAMUNE [Suspect]
     Active Substance: SIROLIMUS
     Indication: RENAL TRANSPLANT
     Dosage: 0.5 MG, DAILY
     Route: 048

REACTIONS (4)
  - Visual impairment [Unknown]
  - Drug intolerance [Unknown]
  - Renal failure [Unknown]
  - Condition aggravated [Unknown]
